FAERS Safety Report 6787691-5 (Version None)
Quarter: 2010Q2

REPORT INFORMATION
  Report Type: 
  Country: None (occurrence: None)
  Receive Date: 20100623
  Receipt Date: 20070618
  Transmission Date: 20101027
  Serious: No
  Sender: FDA-Public Use
  Company Number: US-PFIZER INC-2007050229

PATIENT
  Sex: Male
  Weight: 79.545 kg

DRUGS (2)
  1. SUTENT [Suspect]
     Indication: RENAL CANCER
     Dates: start: 20070101
  2. KLONOPIN [Concomitant]

REACTIONS (1)
  - FATIGUE [None]
